FAERS Safety Report 9954841 (Version 2)
Quarter: 2014Q1

REPORT INFORMATION
  Report Type: Report from Study
  Country: US (occurrence: US)
  Receive Date: 20140304
  Receipt Date: 20140304
  Transmission Date: 20141002
  Serious: Yes (Other)
  Sender: FDA-Public Use
  Company Number: US-ABBVIE-13P-163-1080027-00

PATIENT
  Sex: Female

DRUGS (3)
  1. HUMIRA [Suspect]
     Indication: RHEUMATOID ARTHRITIS
     Dates: start: 20120807
  2. MELOXICAM [Concomitant]
     Indication: RHEUMATOID ARTHRITIS
     Dosage: 1-2 TABLETS EVERY DAY
  3. SULFASALAZINE [Concomitant]
     Indication: RHEUMATOID ARTHRITIS
     Dosage: 6 PILLS A DAY

REACTIONS (5)
  - Tendon operation [Recovered/Resolved]
  - Injection site pain [Recovered/Resolved]
  - Synovial cyst [Recovered/Resolved]
  - Cyst [Unknown]
  - Joint range of motion decreased [Unknown]
